FAERS Safety Report 8401066-4 (Version None)
Quarter: 2012Q2

REPORT INFORMATION
  Report Type: 
  Country: None (occurrence: None)
  Receive Date: 20120525
  Receipt Date: 20120509
  Transmission Date: 20120825
  Serious: Yes (Hospitalization, Other)
  Sender: FDA-Public Use
  Company Number: EUS-2012-00227

PATIENT
  Age: 80 Year
  Sex: Male
  Weight: 58.8 kg

DRUGS (13)
  1. LEUCOVORIN CALCIUM [Concomitant]
  2. CIPROFLOXACIN [Concomitant]
  3. NASEPTIN (NEOMYCIN SULFATE) [Concomitant]
  4. PREDNISOLONE [Concomitant]
  5. METHOTREXATE [Concomitant]
  6. SENNA-MINT WAF [Concomitant]
  7. CYCLOPHOSPHAIDE (CYCLOPHOSPHAMIDE) [Concomitant]
  8. FLUCONAZOLE [Concomitant]
  9. ACETAMINOPHEN [Concomitant]
  10. ERWINASE (ASPARAGINASE) [Suspect]
     Indication: LYMPHOMA
     Dosage: INTRAMUSCULAR
     Route: 030
     Dates: start: 20111023, end: 20111023
  11. ERWINASE (ASPARAGINASE) [Suspect]
     Indication: LYMPHOCYTIC LEUKAEMIA
     Dosage: INTRAMUSCULAR
     Route: 030
     Dates: start: 20111023, end: 20111023
  12. DOXORUBICIN HCL [Concomitant]
  13. VINCRISTINE [Concomitant]

REACTIONS (2)
  - CHEST PAIN [None]
  - MYOCARDIAL INFARCTION [None]
